FAERS Safety Report 9439430 (Version 2)
Quarter: 2013Q3

REPORT INFORMATION
  Report Type: Spontaneous
  Country: DE (occurrence: DE)
  Receive Date: 20130805
  Receipt Date: 20130826
  Transmission Date: 20140515
  Serious: Yes (Other)
  Sender: FDA-Public Use
  Company Number: DE-BIOGENIDEC-2013BI071822

PATIENT
  Age: 31 Year
  Sex: Female

DRUGS (3)
  1. TYSABRI [Suspect]
     Indication: PRODUCT USED FOR UNKNOWN INDICATION
     Route: 042
     Dates: start: 201010
  2. CYMBALTA [Concomitant]
     Indication: DEPRESSION
     Dates: start: 2012
  3. TRAZODONE [Concomitant]
     Indication: DEPRESSION
     Dates: start: 2012

REACTIONS (1)
  - Osteonecrosis of jaw [Not Recovered/Not Resolved]
